FAERS Safety Report 9529687 (Version 2)
Quarter: 2013Q4

REPORT INFORMATION
  Report Type: Spontaneous
  Country: US (occurrence: US)
  Receive Date: 20130917
  Receipt Date: 20131021
  Transmission Date: 20140711
  Serious: Yes (Other)
  Sender: FDA-Public Use
  Company Number: US-GLAXOSMITHKLINE-A1041582A

PATIENT
  Age: 65 Year
  Sex: Male
  Weight: 75.9 kg

DRUGS (1)
  1. VOTRIENT [Suspect]
     Indication: RENAL CANCER
     Dosage: 800MG PER DAY
     Route: 048
     Dates: start: 20130821, end: 20130916

REACTIONS (4)
  - Mental impairment [Recovered/Resolved]
  - Blister [Recovered/Resolved]
  - Dysphonia [Recovered/Resolved]
  - Balance disorder [Recovered/Resolved]
